FAERS Safety Report 15957508 (Version 1)
Quarter: 2019Q1

REPORT INFORMATION
  Report Type: Spontaneous
  Country: US (occurrence: US)
  Receive Date: 20190213
  Receipt Date: 20190213
  Transmission Date: 20190417
  Serious: No
  Sender: FDA-Public Use
  Company Number: US-SA-2019SA036754

PATIENT
  Age: 65 Year
  Sex: Female

DRUGS (1)
  1. TOUJEO [Suspect]
     Active Substance: INSULIN GLARGINE
     Indication: TYPE 2 DIABETES MELLITUS
     Dosage: 20 U, HS
     Route: 065

REACTIONS (6)
  - Throat irritation [Unknown]
  - Product dispensing error [Unknown]
  - Rhinorrhoea [Unknown]
  - Influenza [Unknown]
  - Intentional dose omission [Unknown]
  - Chills [Unknown]
